FAERS Safety Report 23917805 (Version 1)
Quarter: 2024Q2

REPORT INFORMATION
  Report Type: Spontaneous
  Country: US (occurrence: US)
  Receive Date: 20240530
  Receipt Date: 20240530
  Transmission Date: 20240716
  Serious: Yes (Hospitalization, Other)
  Sender: FDA-Public Use
  Company Number: US-Oxford Pharmaceuticals, LLC-2157573

PATIENT
  Age: 22 Year
  Sex: Male
  Weight: 136 kg

DRUGS (3)
  1. LEVETIRACETAM [Suspect]
     Active Substance: LEVETIRACETAM
     Indication: Generalised tonic-clonic seizure
     Route: 042
  2. PROPOFOL [Suspect]
     Active Substance: PROPOFOL
  3. MIDAZOLAM [Suspect]
     Active Substance: MIDAZOLAM

REACTIONS (2)
  - Rhabdomyolysis [Unknown]
  - Renal impairment [Unknown]
